FAERS Safety Report 14661656 (Version 4)
Quarter: 2018Q3

REPORT INFORMATION
  Report Type: Report from Study
  Country: US (occurrence: US)
  Receive Date: 20180320
  Receipt Date: 20180820
  Transmission Date: 20181010
  Serious: No
  Sender: FDA-Public Use
  Company Number: PHEH2018US010669

PATIENT
  Age: 37 Year
  Sex: Male

DRUGS (2)
  1. COSENTYX [Suspect]
     Active Substance: SECUKINUMAB
     Indication: PSORIASIS
     Dosage: 300 MG, QW
     Route: 065
     Dates: start: 20180401
  2. COSENTYX [Suspect]
     Active Substance: SECUKINUMAB
     Dosage: 300 MG, QMO
     Route: 058

REACTIONS (11)
  - Cough [Unknown]
  - Myositis [Unknown]
  - Peripheral coldness [Unknown]
  - Malaise [Unknown]
  - Ear infection [Unknown]
  - Respiratory disorder [Unknown]
  - Body temperature decreased [Unknown]
  - Psoriasis [Unknown]
  - Chest discomfort [Unknown]
  - Productive cough [Unknown]
  - Fatigue [Unknown]

NARRATIVE: CASE EVENT DATE: 20180806
